FAERS Safety Report 4664722-X (Version None)
Quarter: 2005Q2

REPORT INFORMATION
  Report Type: 
  Country: None (occurrence: None)
  Receive Date: 20050516
  Receipt Date: 20050428
  Transmission Date: 20051028
  Serious: Yes (Death, Hospitalization)
  Sender: FDA-Public Use
  Company Number: 106503ISR

PATIENT
  Age: 52 Year
  Sex: Female

DRUGS (2)
  1. FLUOROURACIL [Suspect]
     Indication: CERVIX CARCINOMA
     Dosage: INTRAVENOUS (NOS)
     Route: 042
     Dates: start: 20050307, end: 20050310
  2. CISPLATIN (BATCH #: 3025) [Suspect]
     Indication: CERVIX CARCINOMA
     Dosage: INTRAVENOUS (NOS)
     Route: 042
     Dates: start: 20050307, end: 20050307

REACTIONS (3)
  - CONVULSION [None]
  - RENAL FAILURE ACUTE [None]
  - STATUS EPILEPTICUS [None]
